FAERS Safety Report 20316000 (Version 2)
Quarter: 2022Q2

REPORT INFORMATION
  Report Type: Spontaneous
  Country: SE (occurrence: SE)
  Receive Date: 20220110
  Receipt Date: 20220405
  Transmission Date: 20220721
  Serious: Yes (Other)
  Sender: FDA-Public Use
  Company Number: SE-BAYER-2021A267748

PATIENT
  Sex: Female

DRUGS (3)
  1. EYLEA [Suspect]
     Active Substance: AFLIBERCEPT
     Indication: Neovascular age-related macular degeneration
     Dosage: 0.05 ML
     Route: 031
     Dates: start: 20160921
  2. EYLEA [Suspect]
     Active Substance: AFLIBERCEPT
     Dosage: 1 DF, ONCE
     Route: 031
     Dates: start: 20211109, end: 20211109
  3. EYLEA [Suspect]
     Active Substance: AFLIBERCEPT
     Dosage: 1 DF, ONCE
     Route: 031
     Dates: start: 20211216, end: 20211216

REACTIONS (7)
  - Retinal haemorrhage [Recovering/Resolving]
  - Endophthalmitis [Recovering/Resolving]
  - Non-infectious endophthalmitis [Unknown]
  - Vitritis [Recovering/Resolving]
  - Vitritis [Unknown]
  - Iritis [Recovering/Resolving]
  - Iritis [Unknown]

NARRATIVE: CASE EVENT DATE: 20211114
